FAERS Safety Report 9882041 (Version 1)
Quarter: 2014Q1

REPORT INFORMATION
  Report Type: Report from Study
  Country: BR (occurrence: BR)
  Receive Date: 20140207
  Receipt Date: 20140207
  Transmission Date: 20141002
  Serious: Yes (Life-Threatening, Other)
  Sender: FDA-Public Use
  Company Number: PHHY2014BR014875

PATIENT
  Sex: Female
  Weight: 60 kg

DRUGS (6)
  1. FORASEQ [Suspect]
     Indication: ASTHMA
     Dosage: ONE CAPSULE IN MORNIN AND ONE AT NIGHT
     Route: 055
  2. FORASEQ [Suspect]
     Dosage: UNK UKN, UNK
     Route: 055
  3. TORSILAX [Concomitant]
     Indication: PAIN
     Dosage: UNK UKN, UNK
  4. TORSILAX [Concomitant]
     Indication: OSTEOARTHRITIS
  5. CAPTOPRIL [Concomitant]
     Indication: BLOOD PRESSURE ABNORMAL
     Dosage: 25 MG, UNK
  6. LOSARTAN [Concomitant]
     Indication: BLOOD PRESSURE ABNORMAL
     Dosage: 25 MG, UNK

REACTIONS (3)
  - Apparent life threatening event [Unknown]
  - Malaise [Unknown]
  - Drug dependence [Unknown]
